FAERS Safety Report 4883164-5 (Version None)
Quarter: 2006Q1

REPORT INFORMATION
  Report Type: 
  Country: None (occurrence: None)
  Receive Date: 20060117
  Receipt Date: 20060117
  Transmission Date: 20060701
  Serious: Yes (Hospitalization)
  Sender: FDA-Public Use
  Company Number: None

PATIENT
  Sex: Female

DRUGS (1)
  1. MINOCYCLINE HYDROCHLORIDE [Suspect]
     Indication: ACNE
     Dosage: 1 CAPSULE   TWICE DAILY  PO
     Route: 048
     Dates: start: 20051221, end: 20060103

REACTIONS (1)
  - BENIGN INTRACRANIAL HYPERTENSION [None]
